FAERS Safety Report 10579843 (Version 1)
Quarter: 2014Q4

REPORT INFORMATION
  Report Type: Spontaneous
  Country: US (occurrence: US)
  Receive Date: 20141112
  Receipt Date: 20141112
  Transmission Date: 20150529
  Serious: No
  Sender: FDA-Public Use
  Company Number: US-009507513-1411USA004718

PATIENT
  Sex: Female

DRUGS (2)
  1. PREDNISONE. [Suspect]
     Active Substance: PREDNISONE
     Route: 048
  2. SIMVASTATIN TABLETS, USP [Suspect]
     Active Substance: SIMVASTATIN
     Route: 048

REACTIONS (1)
  - Drug hypersensitivity [Unknown]
